FAERS Safety Report 23772563 (Version 2)
Quarter: 2024Q2

REPORT INFORMATION
  Report Type: Spontaneous
  Country: US (occurrence: US)
  Receive Date: 20240423
  Receipt Date: 20240602
  Transmission Date: 20240716
  Serious: No
  Sender: FDA-Public Use
  Company Number: US-AstraZeneca-CH-00607461A

PATIENT
  Sex: Male

DRUGS (2)
  1. SOLIRIS [Suspect]
     Active Substance: ECULIZUMAB
     Indication: Paroxysmal nocturnal haemoglobinuria
     Dosage: UNK, EVERY THIRTEEN DAYS
     Route: 042
     Dates: start: 2012
  2. ULTOMIRIS [Suspect]
     Active Substance: RAVULIZUMAB-CWVZ
     Indication: Paroxysmal nocturnal haemoglobinuria
     Dosage: 300 MILLIGRAM, EVERY EIGHT WEEKS
     Route: 042
     Dates: start: 202101

REACTIONS (3)
  - Chromaturia [Unknown]
  - Haemoglobin decreased [Not Recovered/Not Resolved]
  - Product distribution issue [Unknown]
